FAERS Safety Report 10029271 (Version 1)
Quarter: 2014Q1

REPORT INFORMATION
  Report Type: Spontaneous
  Country: US (occurrence: US)
  Receive Date: 20140321
  Receipt Date: 20140321
  Transmission Date: 20141002
  Serious: Yes (Other)
  Sender: FDA-Public Use
  Company Number: ALCN2014US001701

PATIENT
  Age: 81 Year
  Sex: Female

DRUGS (4)
  1. NEVANAC [Suspect]
     Indication: POSTOPERATIVE CARE
     Dosage: 1 GTT, TID
     Route: 047
     Dates: start: 2009, end: 2009
  2. TOBRADEX [Suspect]
     Indication: POSTOPERATIVE CARE
     Dosage: 1 GTT, QID
     Route: 047
     Dates: start: 2009, end: 2009
  3. PREDNISOLONE ACETATE [Suspect]
     Dosage: 1 GTT, EVERY 30 MINUTES
     Route: 047
     Dates: start: 2009, end: 2009
  4. MOXIFLOXACIN [Concomitant]
     Dosage: 1 GTT, EVERY 30 MINUTES
     Route: 047
     Dates: start: 2009, end: 2009

REACTIONS (6)
  - Endophthalmitis [Recovered/Resolved]
  - Condition aggravated [Recovered/Resolved]
  - Corneal epithelium defect [Unknown]
  - Corneal oedema [Recovered/Resolved]
  - Hypopyon [Recovering/Resolving]
  - Visual acuity reduced [Recovering/Resolving]
